FAERS Safety Report 5251254-3 (Version None)
Quarter: 2007Q1

REPORT INFORMATION
  Report Type: 
  Country: None (occurrence: None)
  Receive Date: 20070228
  Receipt Date: 20061215
  Transmission Date: 20070707
  Serious: No
  Sender: FDA-Public Use
  Company Number: US-GLAXOSMITHKLINE-A0631766A

PATIENT
  Sex: Female

DRUGS (4)
  1. LAMICTAL [Suspect]
     Indication: DRUG USE FOR UNKNOWN INDICATION
     Route: 048
  2. ALBUTEROL [Suspect]
     Indication: DRUG USE FOR UNKNOWN INDICATION
     Route: 065
  3. ADDERALL 10 [Suspect]
     Indication: DRUG USE FOR UNKNOWN INDICATION
  4. NEXIUM [Suspect]
     Indication: DRUG USE FOR UNKNOWN INDICATION

REACTIONS (7)
  - BIPOLAR DISORDER [None]
  - DISTURBANCE IN ATTENTION [None]
  - DYSPNOEA [None]
  - MENTAL DISORDER [None]
  - PAIN [None]
  - PERFORMANCE STATUS DECREASED [None]
  - VOMITING [None]
